FAERS Safety Report 21602083 (Version 2)
Quarter: 2022Q4

REPORT INFORMATION
  Report Type: Spontaneous
  Country: RU (occurrence: RU)
  Receive Date: 20221116
  Receipt Date: 20221124
  Transmission Date: 20230113
  Serious: Yes (Other)
  Sender: FDA-Public Use
  Company Number: RU-drreddys-LIT/RUS/22/0157074

PATIENT
  Sex: Male

DRUGS (15)
  1. CETIRIZINE [Suspect]
     Active Substance: CETIRIZINE HYDROCHLORIDE
     Indication: Dermatitis atopic
  2. KETOTIFEN [Suspect]
     Active Substance: KETOTIFEN
     Indication: Dermatitis atopic
  3. VALERIAN EXTRACT [Suspect]
     Active Substance: VALERIAN EXTRACT
     Indication: Dermatitis atopic
  4. GLYCINE [Suspect]
     Active Substance: GLYCINE
     Indication: Dermatitis atopic
     Dosage: MICROENCAPSULATED GLYCINE
  5. SACCHAROMYCES CEREVISIAE VAR. BOULARDII CNCM I-745 [Suspect]
     Active Substance: SACCHAROMYCES CEREVISIAE VAR. BOULARDII CNCM I-745
     Indication: Dyschezia
  6. LACTICASEIBACILLUS RHAMNOSUS GG [Suspect]
     Active Substance: LACTICASEIBACILLUS RHAMNOSUS GG
     Indication: Dyschezia
  7. DIETARY SUPPLEMENT [Suspect]
     Active Substance: DIETARY SUPPLEMENT
     Indication: Dyschezia
  8. INTERFERON ALFA-2B [Suspect]
     Active Substance: INTERFERON ALFA-2B
     Indication: Dyschezia
  9. METHYLPREDNISOLONE ACEPONATE [Suspect]
     Active Substance: METHYLPREDNISOLONE ACEPONATE
     Indication: Product used for unknown indication
     Dosage: MORE THAN 2 WEEK
     Route: 061
  10. FLUTICASONE PROPIONATE [Suspect]
     Active Substance: FLUTICASONE PROPIONATE
     Indication: Product used for unknown indication
     Route: 061
  11. BENZALKONIUM CHLORIDE\CETRIMIDE [Suspect]
     Active Substance: BENZALKONIUM CHLORIDE\CETRIMIDE
     Indication: Product used for unknown indication
     Dosage: 2 TIMES A DAY FOR A LONG TIME (MORE 2 WEEKS)
     Route: 061
  12. ZINC OXIDE [Suspect]
     Active Substance: ZINC OXIDE
     Indication: Product used for unknown indication
     Dosage: LONG PERIOD OF TIME (} 2 WEEKS)
  13. DEXPANTHENOL\ECONAZOLE NITRATE\GENTAMICIN SULFATE\MOMETASONE [Suspect]
     Active Substance: DEXPANTHENOL\ECONAZOLE NITRATE\GENTAMICIN SULFATE\MOMETASONE
     Indication: Product used for unknown indication
  14. LACTULOSE [Suspect]
     Active Substance: LACTULOSE
     Indication: Dyschezia
  15. betamethasone dipropionate/clotrimazole/gentamicin [Concomitant]
     Indication: Product used for unknown indication
     Dosage: 2 TIMES A DAY FOR A LONG TIME (MORE 2 WEEKS)
     Route: 061

REACTIONS (7)
  - Langerhans^ cell histiocytosis [Unknown]
  - Condition aggravated [Recovering/Resolving]
  - Sluggishness [Recovering/Resolving]
  - Decreased appetite [Recovering/Resolving]
  - Rash erythematous [Recovering/Resolving]
  - Scab [Recovering/Resolving]
  - General physical health deterioration [Unknown]
